FAERS Safety Report 18466842 (Version 2)
Quarter: 2020Q4

REPORT INFORMATION
  Report Type: Spontaneous
  Country: CL (occurrence: CL)
  Receive Date: 20201105
  Receipt Date: 20201113
  Transmission Date: 20210114
  Serious: Yes (Hospitalization)
  Sender: FDA-Public Use
  Company Number: CL-STRIDES ARCOLAB LIMITED-2020SP013557

PATIENT
  Age: 14 Year
  Sex: Female

DRUGS (3)
  1. TENOFOVIR DISOPROXIL FUMARATE. [Suspect]
     Active Substance: TENOFOVIR DISOPROXIL FUMARATE
     Indication: HIV INFECTION
     Dosage: UNK
     Route: 065
  2. KALETRA [Concomitant]
     Active Substance: LOPINAVIR\RITONAVIR
     Indication: HIV INFECTION
     Dosage: UNK
     Route: 065
  3. ABACAVIR. [Suspect]
     Active Substance: ABACAVIR
     Indication: HIV INFECTION
     Dosage: UNK
     Route: 065

REACTIONS (10)
  - Fatigue [Recovered/Resolved]
  - Metabolic acidosis [Recovered/Resolved]
  - Renal tubular dysfunction [Recovered/Resolved]
  - Hip fracture [Recovered/Resolved]
  - Bone pain [Recovered/Resolved]
  - Osteoporosis [Recovered/Resolved]
  - Fanconi syndrome [Recovered/Resolved]
  - Wrist fracture [Recovered/Resolved]
  - Pain in extremity [Recovered/Resolved]
  - Asthenia [Recovered/Resolved]
